FAERS Safety Report 16444134 (Version 1)
Quarter: 2019Q2

REPORT INFORMATION
  Report Type: Spontaneous
  Country: US (occurrence: US)
  Receive Date: 20190508
  Receipt Date: 20190508
  Transmission Date: 20190711
  Serious: Yes (Hospitalization)
  Sender: FDA-Public Use
  Company Number: None

PATIENT
  Age: 35 Year
  Sex: Female

DRUGS (16)
  1. CIPROFLOXACIN. [Concomitant]
     Active Substance: CIPROFLOXACIN
  2. JUNEL FE 1/20 [Concomitant]
     Active Substance: ETHINYL ESTRADIOL\NORETHINDRONE ACETATE
  3. MICROGESTIN [Concomitant]
     Active Substance: ETHINYL ESTRADIOL\NORETHINDRONE ACETATE
  4. OCREVUS [Suspect]
     Active Substance: OCRELIZUMAB
     Dosage: ?          OTHER FREQUENCY:6 MONTHS ;?
     Route: 042
  5. TAMSULOSIN [Concomitant]
     Active Substance: TAMSULOSIN
  6. VIT B [Concomitant]
     Active Substance: VITAMIN B
  7. ZYRTEC [Concomitant]
     Active Substance: CETIRIZINE HYDROCHLORIDE
  8. FLUOXETINE [Concomitant]
     Active Substance: FLUOXETINE HYDROCHLORIDE
  9. PROZAC [Concomitant]
     Active Substance: FLUOXETINE HYDROCHLORIDE
  10. VIT D [Concomitant]
     Active Substance: VITAMIN D NOS
  11. OMEGA 3 [Concomitant]
     Active Substance: OMEGA-3 FATTY ACIDS
  12. PROVIGIL [Concomitant]
     Active Substance: MODAFINIL
  13. DALFAMPRIDINE ER TAB [Suspect]
     Active Substance: DALFAMPRIDINE
     Indication: MULTIPLE SCLEROSIS
     Dosage: ?          OTHER FREQUENCY:12 HOUR ;?
     Route: 048
  14. BACLOFEN. [Concomitant]
     Active Substance: BACLOFEN
  15. FLOMAX [Concomitant]
     Active Substance: TAMSULOSIN HYDROCHLORIDE
  16. GABAPENTIN. [Concomitant]
     Active Substance: GABAPENTIN

REACTIONS (2)
  - Multiple sclerosis relapse [None]
  - Urinary tract infection [None]
